FAERS Safety Report 6725634-0 (Version None)
Quarter: 2010Q2

REPORT INFORMATION
  Report Type: 
  Country: None (occurrence: None)
  Receive Date: 20100514
  Receipt Date: 20100510
  Transmission Date: 20101027
  Serious: Yes (Life-Threatening)
  Sender: FDA-Public Use
  Company Number: JP-SANOFI-AVENTIS-200911264JP

PATIENT
  Age: 51 Year
  Sex: Female

DRUGS (20)
  1. LEFLUNOMIDE [Suspect]
     Indication: RHEUMATOID ARTHRITIS
     Route: 048
     Dates: start: 20080602, end: 20080604
  2. LEFLUNOMIDE [Suspect]
     Route: 048
     Dates: start: 20080605, end: 20080613
  3. QUESTRAN [Suspect]
     Indication: DRUG DETOXIFICATION
     Route: 048
     Dates: start: 20080615, end: 20080621
  4. PREDNISOLONE [Concomitant]
     Indication: RHEUMATOID ARTHRITIS
     Dosage: 2 TABLETSX2/DAY
     Route: 048
     Dates: start: 20080402, end: 20080614
  5. PREDNISOLONE [Concomitant]
     Dosage: 2 TABLETSX2/DAY
     Route: 048
  6. LOXOPROFEN SODIUM [Concomitant]
     Indication: RHEUMATOID ARTHRITIS
     Dosage: 1 TABLETX3/DAY
     Route: 048
     Dates: start: 20080206, end: 20080614
  7. LOXOPROFEN SODIUM [Concomitant]
     Dosage: 1 TABLETX3/DAY
     Route: 048
  8. HICEE [Concomitant]
     Indication: VITAMIN C DEFICIENCY
     Dosage: 1PACKAGEX3/DAY
     Route: 048
     Dates: start: 20080206, end: 20080614
  9. HICEE [Concomitant]
     Indication: VITAMIN SUPPLEMENTATION
     Dosage: 1PACKAGEX3/DAY
     Route: 048
     Dates: start: 20080206, end: 20080614
  10. HICEE [Concomitant]
     Dosage: 1PACKAGEX3/DAY
     Route: 048
  11. HICEE [Concomitant]
     Dosage: 1PACKAGEX3/DAY
     Route: 048
  12. TOCOPHERYL NICOTINATE [Concomitant]
     Indication: PERIPHERAL CIRCULATORY FAILURE
     Dosage: 1CAPSULESX3/DAY
     Route: 048
     Dates: start: 20080206, end: 20080614
  13. TOCOPHERYL NICOTINATE [Concomitant]
     Indication: VITAMIN SUPPLEMENTATION
     Dosage: 1CAPSULESX3/DAY
     Route: 048
     Dates: start: 20080206, end: 20080614
  14. TOCOPHERYL NICOTINATE [Concomitant]
     Dosage: 1CAPSULESX3/DAY
     Route: 048
  15. TOCOPHERYL NICOTINATE [Concomitant]
     Dosage: 1CAPSULESX3/DAY
     Route: 048
  16. NEUROVITAN [Concomitant]
     Indication: HYPOVITAMINOSIS
     Dosage: 1 TABLET X3/DAY
     Route: 048
     Dates: start: 20080206, end: 20080614
  17. NEUROVITAN [Concomitant]
     Indication: VITAMIN SUPPLEMENTATION
     Dosage: 1 TABLET X3/DAY
     Route: 048
     Dates: start: 20080206, end: 20080614
  18. NEUROVITAN [Concomitant]
     Dosage: 1 TABLET X3/DAY
     Route: 048
  19. NEUROVITAN [Concomitant]
     Dosage: 1 TABLET X3/DAY
     Route: 048
  20. ALENDRONATE SODIUM [Concomitant]
     Indication: OSTEOPOROSIS PROPHYLAXIS
     Route: 048

REACTIONS (8)
  - ALANINE AMINOTRANSFERASE INCREASED [None]
  - ASPARTATE AMINOTRANSFERASE INCREASED [None]
  - BLOOD ALKALINE PHOSPHATASE INCREASED [None]
  - BLOOD LACTATE DEHYDROGENASE INCREASED [None]
  - HISTIOCYTOSIS HAEMATOPHAGIC [None]
  - PLATELET COUNT DECREASED [None]
  - RASH [None]
  - WHITE BLOOD CELL COUNT DECREASED [None]
